FAERS Safety Report 12235887 (Version 5)
Quarter: 2016Q3

REPORT INFORMATION
  Report Type: Spontaneous
  Country: GB (occurrence: GB)
  Receive Date: 20160404
  Receipt Date: 20160802
  Transmission Date: 20161109
  Serious: Yes (Hospitalization)
  Sender: FDA-Public Use
  Company Number: GB-JNJFOC-20160330136

PATIENT
  Age: 61 Year
  Sex: Male

DRUGS (3)
  1. SIMPONI [Suspect]
     Active Substance: GOLIMUMAB
     Indication: PRODUCT USED FOR UNKNOWN INDICATION
     Route: 058
  2. SIMPONI [Suspect]
     Active Substance: GOLIMUMAB
     Indication: PRODUCT USED FOR UNKNOWN INDICATION
     Dosage: 4 INJECTIONS IN THAT 3 NOTED
     Route: 058
     Dates: start: 20160521
  3. SIMPONI [Suspect]
     Active Substance: GOLIMUMAB
     Indication: PRODUCT USED FOR UNKNOWN INDICATION
     Route: 058
     Dates: start: 20160420

REACTIONS (14)
  - Condition aggravated [Recovering/Resolving]
  - Arthralgia [Not Recovered/Not Resolved]
  - Sneezing [Unknown]
  - Depressed mood [Not Recovered/Not Resolved]
  - Shoulder operation [Recovered/Resolved]
  - White blood cell count increased [Unknown]
  - Eye pruritus [Unknown]
  - Back pain [Not Recovered/Not Resolved]
  - Inappropriate schedule of drug administration [Unknown]
  - Mobility decreased [Not Recovered/Not Resolved]
  - Drug ineffective [Unknown]
  - Somnolence [Recovered/Resolved]
  - Eye pain [Unknown]
  - Nerve compression [Unknown]

NARRATIVE: CASE EVENT DATE: 2016
